FAERS Safety Report 17089266 (Version 2)
Quarter: 2019Q4

REPORT INFORMATION
  Report Type: Report from Study
  Country: ZA (occurrence: ZA)
  Receive Date: 20191128
  Receipt Date: 20191227
  Transmission Date: 20200122
  Serious: Yes (Other)
  Sender: FDA-Public Use
  Company Number: PHHY2019ZA204677

PATIENT
  Age: 47 Year
  Sex: Female

DRUGS (7)
  1. TUVIGIN [Suspect]
     Active Substance: FINGOLIMOD HYDROCHLORIDE
     Indication: MULTIPLE SCLEROSIS
     Dosage: 0.5 MG, QD
     Route: 048
     Dates: start: 20190829
  2. BETAFERON [Suspect]
     Active Substance: INTERFERON BETA-1B
     Indication: PRODUCT USED FOR UNKNOWN INDICATION
     Route: 065
  3. MYPROCAM [Concomitant]
     Active Substance: CYCLOBENZAPRINE HYDROCHLORIDE
     Indication: PRODUCT USED FOR UNKNOWN INDICATION
     Route: 065
  4. CELEBREX [Concomitant]
     Active Substance: CELECOXIB
     Indication: PRODUCT USED FOR UNKNOWN INDICATION
     Route: 065
  5. TYSABRI [Suspect]
     Active Substance: NATALIZUMAB
     Indication: PRODUCT USED FOR UNKNOWN INDICATION
     Route: 065
  6. EPLEPTIN [Concomitant]
     Active Substance: GABAPENTIN
     Indication: PRODUCT USED FOR UNKNOWN INDICATION
     Dosage: 300 MG, TID
     Route: 065
  7. DORMINOCTIL [Concomitant]
     Indication: PRODUCT USED FOR UNKNOWN INDICATION
     Route: 065

REACTIONS (18)
  - Bilirubin conjugated decreased [Unknown]
  - Gamma-glutamyltransferase increased [Unknown]
  - Toothache [Unknown]
  - Insomnia [Recovering/Resolving]
  - Headache [Recovering/Resolving]
  - Bone pain [Unknown]
  - Malaise [Recovering/Resolving]
  - Pain [Recovering/Resolving]
  - Fatigue [Recovering/Resolving]
  - Haemoglobin decreased [Unknown]
  - Tooth fracture [Unknown]
  - Feeling of body temperature change [Unknown]
  - Influenza [Recovering/Resolving]
  - Irritability [Unknown]
  - Blood pressure increased [Not Recovered/Not Resolved]
  - Lymphocyte count decreased [Recovering/Resolving]
  - Rhinorrhoea [Recovering/Resolving]
  - Tooth abscess [Unknown]

NARRATIVE: CASE EVENT DATE: 20190829
